FAERS Safety Report 13043176 (Version 1)
Quarter: 2016Q4

REPORT INFORMATION
  Report Type: Spontaneous
  Country: US (occurrence: US)
  Receive Date: 20161219
  Receipt Date: 20161219
  Transmission Date: 20170207
  Serious: No
  Sender: FDA-Public Use
  Company Number: US-AMGEN-USASP2016178340

PATIENT
  Age: 64 Year
  Sex: Male

DRUGS (8)
  1. CEVIMELINE. [Concomitant]
     Active Substance: CEVIMELINE
     Dosage: 30 MG, UNK
  2. RAPAFLO [Concomitant]
     Active Substance: SILODOSIN
     Dosage: 8 MG, UNK
  3. CLONAZEPAM. [Concomitant]
     Active Substance: CLONAZEPAM
     Dosage: 1 MG, UNK
  4. HYDROXYCHLOROQUINE [Concomitant]
     Active Substance: HYDROXYCHLOROQUINE
     Dosage: 200 MG, UNK
  5. FENOFIBRATE. [Concomitant]
     Active Substance: FENOFIBRATE
     Dosage: 145 MG, UNK
  6. FOLBIC [Concomitant]
     Active Substance: CYANOCOBALAMIN\FOLIC ACID\PYRIDOXINE
     Dosage: UNK
  7. ENBREL [Suspect]
     Active Substance: ETANERCEPT
     Indication: PRODUCT USED FOR UNKNOWN INDICATION
     Dosage: 50 MG, QWK
     Route: 058
     Dates: start: 20160201
  8. NIFEDIPINE. [Concomitant]
     Active Substance: NIFEDIPINE
     Dosage: 30 MG, UNK

REACTIONS (1)
  - Injection site bruising [Unknown]

NARRATIVE: CASE EVENT DATE: 20161207
